FAERS Safety Report 4861858-5 (Version None)
Quarter: 2005Q4

REPORT INFORMATION
  Report Type: 
  Country: None (occurrence: None)
  Receive Date: 20051129
  Receipt Date: 20051003
  Transmission Date: 20060501
  Serious: No
  Sender: FDA-Public Use
  Company Number: WAES 0510USA00604

PATIENT
  Age: 75 Year
  Sex: Male
  Weight: 69.8539 kg

DRUGS (18)
  1. ZETIA [Suspect]
     Dosage: PO
     Route: 048
  2. HYDRODIURIL [Suspect]
     Dosage: PO
     Route: 048
     Dates: start: 20050101, end: 20050401
  3. REQUIP [Suspect]
     Dosage: SEE IMAGE
     Route: 048
     Dates: start: 20010701, end: 20010101
  4. REQUIP [Suspect]
     Dosage: SEE IMAGE
     Route: 048
     Dates: start: 20040101
  5. REQUIP [Suspect]
     Dosage: SEE IMAGE
     Route: 048
     Dates: start: 20050101
  6. . [Concomitant]
  7. . [Concomitant]
  8. . [Concomitant]
  9. . [Concomitant]
  10. . [Concomitant]
  11. AVODART [Concomitant]
  12. COENZYME Q10 [Concomitant]
  13. SINEMET [Concomitant]
  14. ALLOPURINOL [Concomitant]
  15. ASCORBIC ACID [Concomitant]
  16. FELODIPINE [Concomitant]
  17. SELENIUM SULFIDE [Concomitant]
  18. VITAMIN E [Concomitant]

REACTIONS (1)
  - HALLUCINATION [None]
